FAERS Safety Report 10372455 (Version 2)
Quarter: 2014Q3

REPORT INFORMATION
  Report Type: Spontaneous
  Country: US (occurrence: US)
  Receive Date: 20140808
  Receipt Date: 20140813
  Transmission Date: 20150326
  Serious: Yes (Life-Threatening, Other)
  Sender: FDA-Public Use
  Company Number: US-BAXTER-2014BAX046536

PATIENT
  Age: 49 Year
  Sex: Male
  Weight: 145.5 kg

DRUGS (2)
  1. PRISMASOL B22GK 2/2.5 [Suspect]
     Active Substance: CALCIUM CHLORIDE\DEXTROSE MONOHYDRATE\LACTIC ACID\MAGNESIUM CHLORIDE\POTASSIUM CHLORIDE\SODIUM BICARBONATE\SODIUM CHLORIDE
     Indication: RENAL REPLACEMENT THERAPY
     Route: 010
     Dates: start: 20140721, end: 20140722
  2. HEPARIN [Suspect]
     Active Substance: HEPARIN SODIUM
     Indication: HAEMODIALYSIS
     Route: 010

REACTIONS (11)
  - Platelet count decreased [None]
  - Alanine aminotransferase increased [None]
  - Haematocrit decreased [None]
  - Blood creatine phosphokinase increased [None]
  - Bradycardia [None]
  - White blood cell count increased [None]
  - Blood creatinine increased [None]
  - Blood pH decreased [None]
  - Blood urea increased [None]
  - Cardiac arrest [Recovered/Resolved]
  - Blood glucose increased [None]

NARRATIVE: CASE EVENT DATE: 20140722
